FAERS Safety Report 21955890 (Version 14)
Quarter: 2023Q4

REPORT INFORMATION
  Report Type: Spontaneous
  Country: CA (occurrence: CA)
  Receive Date: 20230206
  Receipt Date: 20231220
  Transmission Date: 20240110
  Serious: Yes (Hospitalization, Other)
  Sender: FDA-Public Use
  Company Number: CA-CELLTRION INC.-2023CA002480

PATIENT

DRUGS (8)
  1. INFLECTRA [Suspect]
     Active Substance: INFLIXIMAB-DYYB
     Indication: Sarcoidosis
     Dosage: 400 MG (5 MG/KG) EVERY 0, 2, 6 WEEKS, THEN EVERY 6 WEEKS
     Route: 042
     Dates: start: 20200303, end: 20200909
  2. INFLECTRA [Suspect]
     Active Substance: INFLIXIMAB-DYYB
     Indication: Neurosarcoidosis
     Dosage: 300 MG INDUCTION DOSE WEEK 0, 2 AND 6, THEN EVERY 8 WEEKS
     Route: 042
     Dates: start: 20230309
  3. INFLECTRA [Suspect]
     Active Substance: INFLIXIMAB-DYYB
     Dosage: 300 MG INDUCTION DOSE WEEK 0, 2 AND 6, THEN EVERY 8 WEEKS
     Route: 042
     Dates: start: 20230419
  4. INFLECTRA [Suspect]
     Active Substance: INFLIXIMAB-DYYB
     Dosage: 300 MG INDUCTION DOSE WEEK 0, 2 AND 6, THEN EVERY 8 WEEKS
     Route: 042
     Dates: start: 20230816
  5. INFLECTRA [Suspect]
     Active Substance: INFLIXIMAB-DYYB
     Dosage: 495 MG, AFTER 12 WEEKS AND 6 DAYS (PRESCRIBED EVERY 8 WEEKS)
     Route: 042
     Dates: start: 20231114
  6. INFLECTRA [Suspect]
     Active Substance: INFLIXIMAB-DYYB
     Dosage: 495 MG, AFTER 12 WEEKS AND 6 DAYS (PRESCRIBED EVERY 8 WEEKS)
     Route: 042
     Dates: start: 20231114
  7. INFLECTRA [Suspect]
     Active Substance: INFLIXIMAB-DYYB
     Dosage: 495 MG, AFTER 12 WEEKS AND 6 DAYS (PRESCRIBED EVERY 8 WEEKS)
     Route: 042
     Dates: start: 20231114
  8. PREDNISONE [Concomitant]
     Active Substance: PREDNISONE
     Dosage: 80 MG, 1X/DAY
     Route: 048

REACTIONS (14)
  - Hypercalcaemia [Unknown]
  - Neurosarcoidosis [Unknown]
  - Vomiting [Unknown]
  - Tremor [Unknown]
  - Anxiety [Recovered/Resolved]
  - Feeling cold [Unknown]
  - Chest discomfort [Recovered/Resolved]
  - Hypoaesthesia [Unknown]
  - Paraesthesia [Unknown]
  - Infusion related reaction [Not Recovered/Not Resolved]
  - Muscle spasms [Unknown]
  - Anxiety [Unknown]
  - Treatment noncompliance [Not Recovered/Not Resolved]
  - Off label use [Unknown]

NARRATIVE: CASE EVENT DATE: 20200303
